FAERS Safety Report 5404307-0 (Version None)
Quarter: 2007Q3

REPORT INFORMATION
  Report Type: 
  Country: None (occurrence: None)
  Receive Date: 20070802
  Receipt Date: 20070615
  Transmission Date: 20080115
  Serious: Yes (Other)
  Sender: FDA-Public Use
  Company Number: BR-PURDUE-USA_2007_0027862

PATIENT
  Age: 37 Year
  Sex: Female
  Weight: 58 kg

DRUGS (2)
  1. OXYCONTIN [Suspect]
     Indication: PAIN
     Dosage: 10 MG, Q12H
     Route: 048
     Dates: start: 20070427, end: 20070428
  2. DEXAMETHASONE 0.5MG TAB [Concomitant]
     Indication: INTERVERTEBRAL DISC PROTRUSION

REACTIONS (2)
  - BURN OESOPHAGEAL [None]
  - THERMAL BURN [None]
